FAERS Safety Report 14785118 (Version 8)
Quarter: 2018Q3

REPORT INFORMATION
  Report Type: Spontaneous
  Country: DE (occurrence: DE)
  Receive Date: 20180420
  Receipt Date: 20180831
  Transmission Date: 20181010
  Serious: Yes (Life-Threatening, Hospitalization, Other)
  Sender: FDA-Public Use
  Company Number: DE-PFIZER INC-2018159897

PATIENT
  Age: 76 Year
  Sex: Male
  Weight: 71 kg

DRUGS (6)
  1. CODEIN [Concomitant]
     Active Substance: CODEINE
     Dosage: 1 DF, QID
     Dates: start: 20180116
  2. BISOPROLOL [Concomitant]
     Active Substance: BISOPROLOL
     Dosage: 1 DF (1 DF= 5 UNITS NOS)
     Dates: start: 20180104
  3. FONDAPARINUX [Concomitant]
     Active Substance: FONDAPARINUX
     Dosage: 1 DF, QD (1 DF= 7.5 UNITS NOS)
     Dates: start: 20171208
  4. NOVALGIN (CAFFEINE\PARACETAMOL\PROPYPHENAZONE) [Concomitant]
     Active Substance: ACETAMINOPHEN\CAFFEINE\PROPYPHENAZONE
     Dosage: 1 DF, TID (1 DF= 1500 UNITS NOS)
     Dates: start: 20171208
  5. PEMETREXED. [Suspect]
     Active Substance: PEMETREXED
     Indication: PLEURAL MESOTHELIOMA
     Dosage: UNK
  6. CARBOPLATIN. [Suspect]
     Active Substance: CARBOPLATIN
     Indication: PLEURAL MESOTHELIOMA
     Dosage: UNK

REACTIONS (2)
  - Myocardial infarction [Not Recovered/Not Resolved]
  - Product use in unapproved indication [Unknown]

NARRATIVE: CASE EVENT DATE: 20180309
